FAERS Safety Report 8168050-X (Version None)
Quarter: 2012Q1

REPORT INFORMATION
  Report Type: 
  Country: None (occurrence: None)
  Receive Date: 20120227
  Receipt Date: 20120220
  Transmission Date: 20120608
  Serious: Yes (Death, Other)
  Sender: FDA-Public Use
  Company Number: PHHY2009JP45036

PATIENT
  Sex: Male

DRUGS (13)
  1. LASIX [Concomitant]
     Dosage: 20 MG, UNK
     Route: 048
     Dates: end: 20090521
  2. ASPARA K [Concomitant]
     Dosage: 3 G, UNK
     Route: 048
     Dates: start: 20090327, end: 20090423
  3. BISOLVON [Concomitant]
     Dosage: 24 MG, UNK
     Route: 048
     Dates: start: 20090725, end: 20101012
  4. TASIGNA [Suspect]
     Indication: CHRONIC MYELOID LEUKAEMIA
     Dosage: 400 MG, DAILY
     Route: 048
     Dates: start: 20090327, end: 20090423
  5. LASIX [Concomitant]
     Dosage: 80 MG, UNK
     Route: 048
     Dates: start: 20090327
  6. FAMOTIDINE [Concomitant]
     Dosage: 20 MG, UNK
     Route: 048
     Dates: start: 20090424, end: 20090730
  7. SIGMART [Concomitant]
     Dosage: 15 MG, UNK
     Route: 048
     Dates: start: 20090703, end: 20101012
  8. TASIGNA [Suspect]
     Dosage: 600 MG, DAILY
     Route: 048
     Dates: start: 20090424, end: 20090507
  9. TASIGNA [Suspect]
     Dosage: 800 MG, DAILY
     Route: 048
     Dates: start: 20090508
  10. LASIX [Concomitant]
     Dosage: 40 MG, UNK
     Route: 048
  11. PROMACTA [Concomitant]
     Dosage: 150 MG, UNK
     Route: 048
     Dates: start: 20090703, end: 20101012
  12. ASPIRIN [Concomitant]
     Route: 048
     Dates: start: 20090424, end: 20101012
  13. RABEPRAZOLE SODIUM [Concomitant]
     Dosage: 10 MG, UNK
     Route: 048
     Dates: start: 20090731, end: 20101012

REACTIONS (8)
  - ESSENTIAL THROMBOCYTHAEMIA [None]
  - MARASMUS [None]
  - MALNUTRITION [None]
  - LIPASE INCREASED [None]
  - BLOOD SODIUM DECREASED [None]
  - IRON DEFICIENCY ANAEMIA [None]
  - GASTRITIS [None]
  - BLOOD POTASSIUM DECREASED [None]
